FAERS Safety Report 23271273 (Version 1)
Quarter: 2023Q4

REPORT INFORMATION
  Report Type: Report from Study
  Country: JP (occurrence: JP)
  Receive Date: 20231207
  Receipt Date: 20231207
  Transmission Date: 20240110
  Serious: Yes (Life-Threatening, Other)
  Sender: FDA-Public Use
  Company Number: JP-002147023-NVSJ2023JP000746

PATIENT
  Age: 65 Year
  Sex: Male
  Weight: 82.5 kg

DRUGS (3)
  1. KYMRIAH [Suspect]
     Active Substance: TISAGENLECLEUCEL
     Indication: Diffuse large B-cell lymphoma
     Dosage: FULL DOSE ADMINISTRATION
     Route: 041
     Dates: start: 20220413, end: 20220413
  2. CYCLOPHOSPHAMIDE [Concomitant]
     Active Substance: CYCLOPHOSPHAMIDE
     Indication: Lymphodepletion
     Dosage: TOTAL DOSAGE: 750MG/M2
     Route: 065
     Dates: start: 20220409
  3. FLUDARABINE [Concomitant]
     Active Substance: FLUDARABINE PHOSPHATE
     Indication: Lymphodepletion
     Dosage: TOTAL DOSAGE: 75MG/M2
     Route: 065
     Dates: start: 20220409

REACTIONS (3)
  - Hypogammaglobulinaemia [Not Recovered/Not Resolved]
  - Neuropathy peripheral [Not Recovered/Not Resolved]
  - Limb discomfort [Unknown]

NARRATIVE: CASE EVENT DATE: 20220413
